FAERS Safety Report 20579987 (Version 2)
Quarter: 2022Q2

REPORT INFORMATION
  Report Type: Spontaneous
  Country: FI (occurrence: FI)
  Receive Date: 20220310
  Receipt Date: 20220401
  Transmission Date: 20220720
  Serious: Yes (Hospitalization, Other)
  Sender: FDA-Public Use
  Company Number: FI-PRINSTON PHARMACEUTICAL INC.-2022PRN00064

PATIENT
  Age: 21 Year
  Sex: Male

DRUGS (2)
  1. AMPHETAMINE [Suspect]
     Active Substance: AMPHETAMINE
     Route: 065
  2. BUPRENORPHINE [Suspect]
     Active Substance: BUPRENORPHINE
     Route: 042

REACTIONS (6)
  - Somnolence [Recovered/Resolved]
  - Spinal shock [Recovered/Resolved with Sequelae]
  - Myelopathy [Recovered/Resolved with Sequelae]
  - Rhabdomyolysis [Recovered/Resolved]
  - Compartment syndrome [Recovered/Resolved]
  - Quadriparesis [Recovered/Resolved with Sequelae]
